FAERS Safety Report 8390950 (Version 2)
Quarter: 2013Q2

REPORT INFORMATION
  Report Type: Spontaneous
  Country: US (occurrence: None)
  Receive Date: 20111221
  Receipt Date: 20121227
  Transmission Date: 20140414
  Serious: Yes (Hospitalization, Other)
  Sender: FDA-Public Use
  Company Number: PHHY2011US44130

PATIENT
  Age: 53 Year
  Sex: Male
  Weight: 63.9 kg

DRUGS (2)
  1. EXJADE [Suspect]
     Indication: IRON OVERLOAD
     Dosage: 1000 MG, DAILY, ORAL
     Route: 048
     Dates: start: 20101229, end: 20111026
  2. EXJADE [Suspect]
     Indication: SICKLE CELL ANAEMIA
     Dosage: 1000 MG, DAILY, ORAL
     Route: 048
     Dates: start: 20101229, end: 20111026

REACTIONS (5)
  - SICKLE CELL ANAEMIA WITH CRISIS [None]
  - OEDEMA PERIPHERAL [None]
  - SOMNOLENCE [None]
  - DIARRHOEA [None]
  - FATIGUE [None]
